FAERS Safety Report 19570726 (Version 1)
Quarter: 2021Q3

REPORT INFORMATION
  Report Type: Report from Study
  Country: BR (occurrence: BR)
  Receive Date: 20210716
  Receipt Date: 20210716
  Transmission Date: 20211014
  Serious: Yes (Death, Life-Threatening)
  Sender: FDA-Public Use
  Company Number: NVSC2021BR158613

PATIENT
  Age: 62 Year
  Sex: Female

DRUGS (1)
  1. COSENTYX [Suspect]
     Active Substance: SECUKINUMAB
     Indication: PRODUCT USED FOR UNKNOWN INDICATION
     Dosage: UNK UNK, (STARTED 5 MONTHS AGO)
     Route: 065

REACTIONS (6)
  - Laryngospasm [Fatal]
  - Throat irritation [Unknown]
  - COVID-19 [Unknown]
  - Laryngeal obstruction [Fatal]
  - Therapeutic response decreased [Unknown]
  - Respiratory arrest [Unknown]

NARRATIVE: CASE EVENT DATE: 20210512
